FAERS Safety Report 17993705 (Version 1)
Quarter: 2020Q3

REPORT INFORMATION
  Report Type: Spontaneous
  Country: US (occurrence: US)
  Receive Date: 20200707
  Receipt Date: 20200707
  Transmission Date: 20201103
  Serious: Yes (Other)
  Sender: FDA-Public Use
  Company Number: None

PATIENT
  Age: 66 Year
  Sex: Male
  Weight: 74.84 kg

DRUGS (17)
  1. HALOPERIDOL LACTATE IN] 2 MG (HALDOL) : [Concomitant]
     Dates: start: 20200623, end: 20200704
  2. CEFTRIAXONE ADD VIAL 2 G (ROCEPHIN) [Concomitant]
     Dates: start: 20200623, end: 20200705
  3. LASIX 40MG [Concomitant]
     Dates: start: 20200623, end: 20200705
  4. LORAZEPAM IN] 2 MG (ATIVAN) [Concomitant]
     Dates: end: 20200704
  5. PHENYLEPHRINE 200 MG IN SODIUM CHLORIDE 0.9% 250 ML IV SOLN [Concomitant]
     Dates: start: 20200623
  6. QUETIAPINE TAB 25 MG (SEROQUEL) : [Concomitant]
     Dates: start: 20200623
  7. VANCOMYCIN PER PROTOCOL [Concomitant]
     Dates: start: 20200623
  8. VECURONIUM INJ 7.5 MG (NORCURON) [Concomitant]
     Dates: start: 20200623
  9. CEFTAZIDIME 2 G (FORTAZ/TAZICEF) [Concomitant]
     Dates: start: 20200623
  10. VENLAFAXINE TAB 75 MG (EFFEXOR) [Concomitant]
     Dates: start: 20200623
  11. REMDESIVIR. [Suspect]
     Active Substance: REMDESIVIR
  12. FENTANYL (PF) IN NS 10 MCG/ML IV SOLN [Concomitant]
     Dates: start: 20200623
  13. MIDAZOLAM (PF) IN] 2 MG (VERSED) [Concomitant]
     Dates: end: 20200705
  14. NOREPINEPHRINE IN NS 8 MG/250 ML (32 MCG/ML) LV PREMIX [Concomitant]
     Dates: start: 20200623
  15. AZITHROMYCIN 500MG (ZITHROMAX) [Concomitant]
     Dates: end: 20200629
  16. ALBUTEROL 90 MEG/ACTUATION HFA MDI 4 PUFF (PROAIR/PROVENTILNENTOLIN) [Concomitant]
     Dates: end: 20200702
  17. PECID 20MG [Concomitant]
     Dates: start: 20200623

REACTIONS (1)
  - Acute kidney injury [None]
